FAERS Safety Report 5008511-5 (Version None)
Quarter: 2006Q2

REPORT INFORMATION
  Report Type: 
  Country: None (occurrence: None)
  Receive Date: 20060522
  Receipt Date: 20060522
  Transmission Date: 20061013
  Serious: Yes (Life-Threatening, Hospitalization, Other)
  Sender: FDA-Public Use
  Company Number: None

PATIENT
  Age: 45 Year
  Sex: Female
  Weight: 83.9154 kg

DRUGS (1)
  1. ORTHO EVRA [Suspect]
     Indication: MENOPAUSE
     Dosage: APPLY 1 WEEKLY FOR THREE WEEK
     Dates: start: 20020801, end: 20030517

REACTIONS (11)
  - APPLICATION SITE PAIN [None]
  - BLOOD PRESSURE INCREASED [None]
  - HOT FLUSH [None]
  - MALAISE [None]
  - NIGHT SWEATS [None]
  - PAIN [None]
  - PAIN IN EXTREMITY [None]
  - PARAESTHESIA [None]
  - SCAR [None]
  - SKIN DISCOLOURATION [None]
  - THROMBOSIS [None]
